FAERS Safety Report 5651194-1 (Version None)
Quarter: 2008Q1

REPORT INFORMATION
  Report Type: 
  Country: None (occurrence: None)
  Receive Date: 20080131
  Receipt Date: 20071202
  Transmission Date: 20080703
  Serious: No
  Sender: FDA-Public Use
  Company Number: US200712000298

PATIENT
  Age: 58 Year
  Sex: Female

DRUGS (4)
  1. BYETTA [Suspect]
     Indication: TYPE 2 DIABETES MELLITUS
     Dosage: 10 UG, 2/D, SUBCUTANEOUS ; 10 UG, DAILY (1/D), SUBCUTANEOUS
     Route: 058
     Dates: start: 20070901, end: 20070101
  2. BYETTA [Suspect]
     Indication: TYPE 2 DIABETES MELLITUS
     Dosage: 10 UG, 2/D, SUBCUTANEOUS ; 10 UG, DAILY (1/D), SUBCUTANEOUS
     Route: 058
     Dates: start: 20070101
  3. METFORMIN HCL [Concomitant]
  4. GLUCOPHAEG /USA/ (METFORMIN HYDROCHLORIDE) [Concomitant]

REACTIONS (2)
  - BLOOD GLUCOSE DECREASED [None]
  - BLOOD GLUCOSE INCREASED [None]
